FAERS Safety Report 5620199-9 (Version None)
Quarter: 2008Q1

REPORT INFORMATION
  Report Type: 
  Country: None (occurrence: None)
  Receive Date: 20080208
  Receipt Date: 20080201
  Transmission Date: 20080703
  Serious: Yes (Life-Threatening, Hospitalization, Other)
  Sender: FDA-Public Use
  Company Number: US-ELI_LILLY_AND_COMPANY-US200801004276

PATIENT
  Sex: Female
  Weight: 77.097 kg

DRUGS (4)
  1. EVISTA [Suspect]
     Indication: OSTEOPOROSIS
     Dosage: 60 MG, DAILY (1/D)
     Dates: start: 20030101, end: 20071105
  2. DYAZIDE [Concomitant]
  3. PAXIL [Concomitant]
  4. ATENOLOL [Concomitant]

REACTIONS (1)
  - THROMBOSIS MESENTERIC VESSEL [None]
